FAERS Safety Report 25543047 (Version 2)
Quarter: 2025Q3

REPORT INFORMATION
  Report Type: Spontaneous
  Country: EU (occurrence: EU)
  Receive Date: 20250711
  Receipt Date: 20250810
  Transmission Date: 20251021
  Serious: Yes (Hospitalization)
  Sender: ALEXION PHARMACEUTICALS
  Company Number: None

PATIENT
  Age: 3 Month
  Sex: Male
  Weight: 6.8 kg

DRUGS (2)
  1. NIRSEVIMAB [Suspect]
     Active Substance: NIRSEVIMAB
     Indication: Antiviral prophylaxis
     Dosage: 1 DF, 1X
     Dates: start: 20241101, end: 20241101
  2. NIRSEVIMAB [Suspect]
     Active Substance: NIRSEVIMAB

REACTIONS (3)
  - Drug ineffective [Unknown]
  - Respiratory syncytial virus infection [Recovered/Resolved]
  - Influenza A virus test positive [Unknown]

NARRATIVE: CASE EVENT DATE: 20250201
